FAERS Safety Report 11124521 (Version 1)
Quarter: 2015Q2

REPORT INFORMATION
  Report Type: Spontaneous
  Country: US (occurrence: None)
  Receive Date: 20150518
  Receipt Date: 20150518
  Transmission Date: 20150821
  Serious: Yes (Other)
  Sender: FDA-Public Use
  Company Number: ADR-2015-00458

PATIENT
  Age: 60 Year
  Sex: Male

DRUGS (2)
  1. KLONOPIN [Suspect]
     Active Substance: CLONAZEPAM
  2. LIORESAL [Suspect]
     Active Substance: BACLOFEN
     Indication: MUSCLE SPASTICITY
     Route: 037

REACTIONS (11)
  - Drug withdrawal syndrome [None]
  - Device dislocation [None]
  - Muscle spasticity [None]
  - Condition aggravated [None]
  - Device failure [None]
  - Mental status changes [None]
  - Implant site extravasation [None]
  - Seizure [None]
  - Therapeutic response changed [None]
  - Device breakage [None]
  - Therapeutic response decreased [None]
